FAERS Safety Report 19305704 (Version 2)
Quarter: 2021Q2

REPORT INFORMATION
  Report Type: Report from Study
  Country: US (occurrence: US)
  Receive Date: 20210526
  Receipt Date: 20210528
  Transmission Date: 20210717
  Serious: No
  Sender: FDA-Public Use
  Company Number: NVSC2021US110643

PATIENT
  Age: 43 Year
  Sex: Female

DRUGS (1)
  1. KESIMPTA [Suspect]
     Active Substance: OFATUMUMAB
     Indication: MULTIPLE SCLEROSIS
     Route: 065
     Dates: start: 20210513

REACTIONS (10)
  - Oropharyngeal pain [Unknown]
  - Chills [Unknown]
  - Product complaint [Unknown]
  - Muscle spasms [Unknown]
  - Fatigue [Unknown]
  - Crying [Unknown]
  - Ear pain [Unknown]
  - Heart rate increased [Unknown]
  - Anxiety [Unknown]
  - Pyrexia [Unknown]

NARRATIVE: CASE EVENT DATE: 20210513
